FAERS Safety Report 14676546 (Version 3)
Quarter: 2018Q3

REPORT INFORMATION
  Report Type: Report from Study
  Country: None (occurrence: US)
  Receive Date: 20180324
  Receipt Date: 20180724
  Transmission Date: 20181010
  Serious: Yes (Hospitalization, Other)
  Sender: FDA-Public Use
  Company Number: US-ABBVIE-18K-163-2294549-00

PATIENT
  Age: 58 Year
  Sex: Male
  Weight: 81.27 kg

DRUGS (10)
  1. NOVOLOG [Concomitant]
     Active Substance: INSULIN ASPART
     Indication: TYPE 2 DIABETES MELLITUS
  2. HUMIRA [Suspect]
     Active Substance: ADALIMUMAB
     Indication: COLITIS ULCERATIVE
     Route: 058
     Dates: start: 2015
  3. VALSARTAN. [Concomitant]
     Active Substance: VALSARTAN
     Indication: CORONARY ARTERY DISEASE
  4. MS CONTIN [Concomitant]
     Active Substance: MORPHINE SULFATE
     Indication: BACK PAIN
  5. LANTUS [Concomitant]
     Active Substance: INSULIN GLARGINE
     Indication: TYPE 2 DIABETES MELLITUS
  6. RANEXA [Concomitant]
     Active Substance: RANOLAZINE
     Indication: ANGINA PECTORIS
  7. ATORVASTATIN [Concomitant]
     Active Substance: ATORVASTATIN
     Indication: BLOOD CHOLESTEROL INCREASED
  8. METOPROLOL. [Concomitant]
     Active Substance: METOPROLOL
     Indication: HEART RATE IRREGULAR
  9. CYCLOBENZAPRINE. [Concomitant]
     Active Substance: CYCLOBENZAPRINE
     Indication: MUSCLE SPASMS
  10. GEMFIBROZIL. [Concomitant]
     Active Substance: GEMFIBROZIL
     Indication: BLOOD CHOLESTEROL INCREASED

REACTIONS (18)
  - Asthenia [Unknown]
  - Dyspnoea exertional [Recovering/Resolving]
  - Chest pain [Not Recovered/Not Resolved]
  - Vomiting [Unknown]
  - Pulmonary mass [Not Recovered/Not Resolved]
  - Dehydration [Recovered/Resolved]
  - Dehydration [Unknown]
  - Oesophagitis [Recovered/Resolved]
  - Gait disturbance [Not Recovered/Not Resolved]
  - Small intestinal obstruction [Recovered/Resolved]
  - Colitis ulcerative [Unknown]
  - Inflammatory bowel disease [Recovered/Resolved]
  - Colitis ulcerative [Recovered/Resolved]
  - Diabetic neuropathy [Not Recovered/Not Resolved]
  - Oesophageal obstruction [Recovered/Resolved]
  - Oxygen saturation decreased [Recovered/Resolved]
  - Gastrointestinal haemorrhage [Recovered/Resolved]
  - Muscle spasms [Not Recovered/Not Resolved]

NARRATIVE: CASE EVENT DATE: 2015
